FAERS Safety Report 6892341-3 (Version None)
Quarter: 2010Q3

REPORT INFORMATION
  Report Type: 
  Country: None (occurrence: None)
  Receive Date: 20100731
  Receipt Date: 20080407
  Transmission Date: 20110219
  Serious: Yes (Death, Other)
  Sender: FDA-Public Use
  Company Number: US-PFIZER INC-2008030604

PATIENT
  Age: 57 Year
  Sex: Male

DRUGS (6)
  1. NEURONTIN [Suspect]
     Indication: PAIN
     Route: 048
     Dates: end: 20050101
  2. NEURONTIN [Suspect]
     Indication: NEUROPATHY PERIPHERAL
  3. NEURONTIN [Suspect]
     Indication: NEURALGIA
  4. GABAPENTIN [Suspect]
     Indication: PAIN
     Route: 048
     Dates: start: 20050101
  5. GABAPENTIN [Suspect]
     Indication: NEUROPATHY PERIPHERAL
  6. GABAPENTIN [Suspect]
     Indication: NEURALGIA

REACTIONS (2)
  - COMPLETED SUICIDE [None]
  - DRUG INEFFECTIVE FOR UNAPPROVED INDICATION [None]
